FAERS Safety Report 14884684 (Version 1)
Quarter: 2018Q2

REPORT INFORMATION
  Report Type: Spontaneous
  Country: GB (occurrence: GB)
  Receive Date: 20180511
  Receipt Date: 20180511
  Transmission Date: 20180711
  Serious: Yes (Hospitalization)
  Sender: FDA-Public Use
  Company Number: GB-FERA PHARMACEUTICALS, LLC-2018PRG00219

PATIENT
  Age: 76 Year
  Sex: Male

DRUGS (3)
  1. DEXAMETHASONE. [Suspect]
     Active Substance: DEXAMETHASONE
     Indication: COLON CANCER METASTATIC
     Dosage: 8 MG, 1X/DAY (FOR 4 DAYS FOLLOWING EACH CYCLE OF OXALIPLATIN AND 5-FLOUROURACIL)
     Route: 065
  2. 5-FLOUROURACIL [Concomitant]
     Active Substance: FLUOROURACIL
     Route: 065
  3. OXALIPLATIN. [Concomitant]
     Active Substance: OXALIPLATIN
     Route: 065

REACTIONS (1)
  - Diabetic ketoacidosis [Recovered/Resolved]
